FAERS Safety Report 6808331-2 (Version None)
Quarter: 2010Q2

REPORT INFORMATION
  Report Type: 
  Country: None (occurrence: None)
  Receive Date: 20100629
  Receipt Date: 20090614
  Transmission Date: 20101027
  Serious: No
  Sender: FDA-Public Use
  Company Number: US-PFIZER INC-2009207745

PATIENT
  Sex: Female
  Weight: 77.11 kg

DRUGS (5)
  1. ZYVOX [Suspect]
     Indication: PERIORBITAL CELLULITIS
     Route: 048
     Dates: start: 20050101
  2. CLINDAMYCIN PHOSPHATE [Suspect]
     Indication: PERIORBITAL CELLULITIS
     Dates: start: 20050101
  3. DIPHENHYDRAMINE [Suspect]
     Dates: start: 20050101
  4. VANCOMYCIN ^ABBOTT^ /DEN/ [Concomitant]
     Dates: start: 20050101
  5. ANTIBIOTICS [Concomitant]
     Dates: start: 20050101

REACTIONS (1)
  - DRUG INEFFECTIVE [None]
